FAERS Safety Report 17109643 (Version 1)
Quarter: 2019Q4

REPORT INFORMATION
  Report Type: Spontaneous
  Country: US (occurrence: US)
  Receive Date: 20191204
  Receipt Date: 20191204
  Transmission Date: 20200122
  Serious: No
  Sender: FDA-Public Use
  Company Number: US-ASTRAZENECA-2019SF59792

PATIENT
  Age: 67 Year
  Sex: Male
  Weight: 101.6 kg

DRUGS (8)
  1. LOSARTAN. [Concomitant]
     Active Substance: LOSARTAN
  2. PLAVIX [Concomitant]
     Active Substance: CLOPIDOGREL BISULFATE
  3. BABY ASPIRIN [Concomitant]
     Active Substance: ASPIRIN
  4. AMLODIPINE/ATORVASTATIN [Concomitant]
     Active Substance: AMLODIPINE BESYLATE\ATORVASTATIN CALCIUM
  5. SYMBICORT [Suspect]
     Active Substance: BUDESONIDE\FORMOTEROL FUMARATE DIHYDRATE
     Indication: CHRONIC OBSTRUCTIVE PULMONARY DISEASE
     Dosage: 2 PUFFS,TWO TIMES A DAY
     Route: 055
     Dates: start: 201910
  6. GABAPENTIN. [Concomitant]
     Active Substance: GABAPENTIN
  7. COLACE [Concomitant]
     Active Substance: DOCUSATE SODIUM
  8. LITHIUM. [Concomitant]
     Active Substance: LITHIUM

REACTIONS (3)
  - Dysgeusia [Unknown]
  - Wheezing [Unknown]
  - Device use issue [Unknown]

NARRATIVE: CASE EVENT DATE: 201909
